FAERS Safety Report 13261166 (Version 1)
Quarter: 2017Q1

REPORT INFORMATION
  Report Type: Spontaneous
  Country: CN (occurrence: CN)
  Receive Date: 20170222
  Receipt Date: 20170222
  Transmission Date: 20170428
  Serious: Yes (Other)
  Sender: FDA-Public Use
  Company Number: PHHY2017CN026014

PATIENT
  Age: 56 Year
  Sex: Female
  Weight: 61.5 kg

DRUGS (1)
  1. FLUVASTATIN [Suspect]
     Active Substance: FLUVASTATIN SODIUM
     Indication: HYPERLIPIDAEMIA
     Dosage: 1 DF, QD
     Route: 048
     Dates: start: 20161122, end: 20161127

REACTIONS (5)
  - Pain [Recovering/Resolving]
  - Swelling [Recovering/Resolving]
  - Myalgia [Recovering/Resolving]
  - Peripheral swelling [Recovering/Resolving]
  - Paraesthesia [Recovering/Resolving]

NARRATIVE: CASE EVENT DATE: 20161127
